FAERS Safety Report 6050981-8 (Version None)
Quarter: 2009Q1

REPORT INFORMATION
  Report Type: 
  Country: None (occurrence: None)
  Receive Date: 20090126
  Receipt Date: 20080912
  Transmission Date: 20090719
  Serious: No
  Sender: FDA-Public Use
  Company Number: US-TYCO HEALTHCARE/MALLINCKRODT-T200801505

PATIENT

DRUGS (1)
  1. OPTIRAY 300 [Suspect]
     Dosage: UNK, SINGLE
     Dates: start: 20080910, end: 20080910

REACTIONS (7)
  - CHEST DISCOMFORT [None]
  - DIZZINESS [None]
  - EYE IRRITATION [None]
  - LACRIMATION INCREASED [None]
  - NASAL CONGESTION [None]
  - NAUSEA [None]
  - OCULAR HYPERAEMIA [None]
